FAERS Safety Report 15608473 (Version 1)
Quarter: 2018Q4

REPORT INFORMATION
  Report Type: Spontaneous
  Country: US (occurrence: US)
  Receive Date: 20181112
  Receipt Date: 20181112
  Transmission Date: 20190205
  Serious: Yes (Other)
  Sender: FDA-Public Use
  Company Number: US-PFIZER INC-2018190008

PATIENT
  Sex: Male

DRUGS (102)
  1. AVELOX [Concomitant]
     Active Substance: MOXIFLOXACIN HYDROCHLORIDE
     Indication: ANTIBIOTIC THERAPY
     Dosage: UNK
     Dates: start: 2008, end: 2015
  2. HYDROXYZINE [Concomitant]
     Active Substance: HYDROXYZINE HYDROCHLORIDE
     Indication: ANTIALLERGIC THERAPY
     Dosage: UNK
     Dates: start: 2008, end: 2018
  3. TRIAMCINOLONE [Concomitant]
     Active Substance: TRIAMCINOLONE
     Dosage: UNK
     Dates: start: 2008, end: 2010
  4. FOLIC ACID. [Concomitant]
     Active Substance: FOLIC ACID
     Indication: HYPOVITAMINOSIS
     Dosage: UNK
     Dates: start: 2008, end: 2009
  5. SULFAMETHOXAZOLE [Concomitant]
     Active Substance: SULFAMETHOXAZOLE
     Indication: ANTIBIOTIC THERAPY
     Dosage: UNK
     Dates: start: 2008, end: 2014
  6. DOXYCYCLINE HYCLATE. [Concomitant]
     Active Substance: DOXYCYCLINE HYCLATE
     Indication: ANTIBIOTIC THERAPY
     Dosage: UNK
     Dates: start: 2010, end: 2018
  7. TRAMADOL. [Concomitant]
     Active Substance: TRAMADOL
     Indication: ANALGESIC THERAPY
     Dosage: UNK
     Dates: start: 2011, end: 2018
  8. POLYSTYRENE SULFONATE CA [Concomitant]
     Dosage: UNK
  9. ALOE VESTA ANTIFUNGAL [Concomitant]
     Active Substance: MICONAZOLE NITRATE
     Dosage: UNK
     Dates: start: 2011
  10. UROCIT-K [Concomitant]
     Active Substance: POTASSIUM CITRATE
     Indication: NEPHROLITHIASIS
  11. MUPIROCIN. [Concomitant]
     Active Substance: MUPIROCIN
     Dosage: UNK
     Dates: start: 2016
  12. LORATADINE. [Concomitant]
     Active Substance: LORATADINE
     Indication: HYPERSENSITIVITY
  13. LUNESTA [Concomitant]
     Active Substance: ESZOPICLONE
     Indication: INSOMNIA
     Dosage: UNK
     Dates: start: 2008
  14. PROPOXYPHENE N/APAP [Concomitant]
     Active Substance: ACETAMINOPHEN\PROPOXYPHENE NAPSYLATE
     Indication: ANALGESIC THERAPY
     Dosage: UNK
     Dates: start: 2008, end: 2011
  15. TEMAZEPAM. [Concomitant]
     Active Substance: TEMAZEPAM
     Indication: INSOMNIA
     Dosage: UNK
     Dates: start: 2008, end: 2015
  16. KLOR-CON [Concomitant]
     Active Substance: POTASSIUM CHLORIDE
     Indication: BLOOD POTASSIUM
     Dosage: UNK
     Dates: start: 2008, end: 2011
  17. ACTOS [Concomitant]
     Active Substance: PIOGLITAZONE HYDROCHLORIDE
     Indication: DIABETES MELLITUS
     Dosage: UNK
     Dates: start: 2008, end: 2012
  18. AMOXICILLIN. [Concomitant]
     Active Substance: AMOXICILLIN
     Indication: ANTIBIOTIC THERAPY
     Dosage: UNK
     Dates: start: 2009
  19. GABAPENTIN. [Concomitant]
     Active Substance: GABAPENTIN
     Indication: ANALGESIC THERAPY
     Dosage: UNK
     Dates: start: 2008, end: 2013
  20. BETAMETHASONE/CLOTRIMAZOLE [Concomitant]
     Indication: ANTIFUNGAL TREATMENT
     Dosage: UNK
     Dates: start: 2009, end: 2010
  21. ALBUTEROL. [Concomitant]
     Active Substance: ALBUTEROL
     Indication: ASTHMA
     Dosage: UNK
     Dates: start: 2009, end: 2010
  22. DIPHENHYDRAMINE. [Concomitant]
     Active Substance: DIPHENHYDRAMINE
     Indication: ANTIALLERGIC THERAPY
     Dosage: UNK
     Dates: start: 2008, end: 2009
  23. TAMIFLU [Concomitant]
     Active Substance: OSELTAMIVIR PHOSPHATE
     Indication: INFLUENZA LIKE ILLNESS
     Dosage: UNK
     Dates: start: 2009, end: 2017
  24. FLUCONAZOLE. [Concomitant]
     Active Substance: FLUCONAZOLE
     Indication: ANTIFUNGAL TREATMENT
     Dosage: UNK
     Dates: start: 2010, end: 2015
  25. CALCIUM [Concomitant]
     Active Substance: CALCIUM
     Dosage: UNK
     Dates: start: 2013
  26. CALCIUM ACETATE. [Concomitant]
     Active Substance: CALCIUM ACETATE
     Dosage: UNK
     Dates: start: 2014
  27. CLINDAMYCIN. [Concomitant]
     Active Substance: CLINDAMYCIN
     Indication: ANTIBIOTIC THERAPY
     Dosage: UNK
     Dates: start: 2015
  28. METHOCARBAMOL. [Concomitant]
     Active Substance: METHOCARBAMOL
     Indication: MUSCLE RELAXANT THERAPY
     Dosage: UNK
     Dates: start: 2017, end: 2018
  29. VITAMIN D2 [Concomitant]
     Active Substance: ERGOCALCIFEROL
     Dosage: 1.25 MG, UNK
     Dates: start: 2011
  30. ESOMEPRAZOLE. [Suspect]
     Active Substance: ESOMEPRAZOLE MAGNESIUM
     Indication: DYSPEPSIA
     Dosage: 40 MG, QD
     Route: 048
     Dates: start: 2015
  31. CIPROFLOXACIN. [Concomitant]
     Active Substance: CIPROFLOXACIN
     Indication: ANTIBIOTIC THERAPY
     Dosage: UNK
     Dates: start: 2008, end: 2010
  32. KETOCONAZOLE. [Concomitant]
     Active Substance: KETOCONAZOLE
     Indication: ANTIFUNGAL TREATMENT
     Dosage: UNK
     Dates: start: 2011, end: 2017
  33. CLARITHROMYCIN. [Concomitant]
     Active Substance: CLARITHROMYCIN
     Indication: ANTIBIOTIC THERAPY
     Dosage: UNK
     Dates: start: 2016
  34. TOUJEO [Concomitant]
     Active Substance: INSULIN GLARGINE
  35. PRILOSEC [Suspect]
     Active Substance: OMEPRAZOLE MAGNESIUM
     Dosage: UNK
     Route: 048
     Dates: start: 2000, end: 2016
  36. GEMFIBROZIL. [Concomitant]
     Active Substance: GEMFIBROZIL
     Indication: BLOOD CHOLESTEROL INCREASED
     Dosage: UNK
     Dates: start: 2008, end: 2018
  37. ALAVERT ALLERGY [Concomitant]
     Active Substance: LORATADINE
     Indication: HYPERSENSITIVITY
     Dosage: UNK
     Dates: start: 2008, end: 2009
  38. SINGULAIR [Concomitant]
     Active Substance: MONTELUKAST SODIUM
     Indication: ASTHMA
     Dosage: UNK
     Dates: start: 2008, end: 2012
  39. CRESTOR [Concomitant]
     Active Substance: ROSUVASTATIN CALCIUM
     Indication: BLOOD CHOLESTEROL INCREASED
     Dosage: UNK
     Dates: start: 2008, end: 2009
  40. IPRATROPIUM [Concomitant]
     Active Substance: IPRATROPIUM
     Dosage: UNK
     Dates: start: 2009, end: 2018
  41. FAMOTIDINE. [Concomitant]
     Active Substance: FAMOTIDINE
     Indication: ANTIALLERGIC THERAPY
     Dosage: UNK
     Dates: start: 2009
  42. NYSTATIN AND TRIAMCINOLONE [Concomitant]
     Active Substance: NYSTATIN\TRIAMCINOLONE ACETONIDE
     Dosage: UNK
     Dates: start: 2012, end: 2018
  43. DESONIDE. [Concomitant]
     Active Substance: DESONIDE
     Dosage: UNK
     Dates: start: 2013, end: 2014
  44. PROAIR HFA [Concomitant]
     Active Substance: ALBUTEROL SULFATE
     Indication: ASTHMA
     Dosage: UNK
     Dates: start: 2013, end: 2018
  45. GUAIFENESIN. [Concomitant]
     Active Substance: GUAIFENESIN
     Dosage: UNK
     Dates: start: 2008
  46. KIONEX [Concomitant]
     Active Substance: SODIUM POLYSTYRENE SULFONATE
     Dosage: UNK
     Dates: start: 2014
  47. ONDANSETRON [Concomitant]
     Active Substance: ONDANSETRON
     Indication: NAUSEA
     Dosage: UNK
     Dates: start: 2017, end: 2018
  48. PREVACID [Suspect]
     Active Substance: LANSOPRAZOLE
     Dosage: UNK
     Route: 048
     Dates: start: 2000, end: 2016
  49. METOPROLOL. [Concomitant]
     Active Substance: METOPROLOL
     Indication: HYPERTENSION
     Dosage: UNK
     Dates: start: 2014, end: 2017
  50. METFORMIN [Concomitant]
     Active Substance: METFORMIN HYDROCHLORIDE
     Indication: DIABETES MELLITUS
     Dosage: UNK
     Dates: start: 2008, end: 2011
  51. JANUVIA [Concomitant]
     Active Substance: SITAGLIPTIN PHOSPHATE
     Indication: DIABETES MELLITUS
     Dosage: UNK
     Dates: start: 2008, end: 2011
  52. FERROUS SULFATE. [Concomitant]
     Active Substance: FERROUS SULFATE
     Dosage: UNK
     Dates: start: 2009, end: 2011
  53. NASACORT [Concomitant]
     Active Substance: TRIAMCINOLONE ACETONIDE
     Indication: HYPERSENSITIVITY
     Dosage: UNK
     Dates: start: 2009
  54. HYDROCODONE/ACETAMINOPHEN [Concomitant]
     Active Substance: ACETAMINOPHEN\HYDROCODONE
     Indication: ANALGESIC THERAPY
     Dosage: UNK
     Dates: start: 2010, end: 2011
  55. SODIUM [Concomitant]
     Active Substance: SODIUM
     Dosage: UNK
     Dates: start: 2011
  56. AMLODIPINE BESYLATE. [Concomitant]
     Active Substance: AMLODIPINE BESYLATE
     Indication: HYPERTENSION
     Dosage: UNK
     Dates: start: 2011, end: 2018
  57. CLOBETASOL [Concomitant]
     Active Substance: CLOBETASOL
     Dosage: UNK
     Dates: start: 2012
  58. BENZONATATE. [Concomitant]
     Active Substance: BENZONATATE
     Dosage: UNK
     Dates: start: 2008, end: 2012
  59. MONTELUKAST [Concomitant]
     Active Substance: MONTELUKAST SODIUM
     Indication: ASTHMA
     Dosage: UNK
     Dates: start: 2012, end: 2018
  60. ADVAIR HFA [Concomitant]
     Active Substance: FLUTICASONE PROPIONATE\SALMETEROL XINAFOATE
     Dosage: UNK
     Dates: start: 2008, end: 2017
  61. SILVER SULFADIAZINE. [Concomitant]
     Active Substance: SILVER SULFADIAZINE
     Indication: ANTIBIOTIC THERAPY
     Dosage: UNK
     Dates: start: 2008, end: 2010
  62. NYSTOP [Concomitant]
     Active Substance: NYSTATIN
     Indication: ANTIFUNGAL TREATMENT
     Dosage: UNK
     Dates: start: 2012, end: 2014
  63. VITAMIN D [Concomitant]
     Active Substance: CHOLECALCIFEROL
     Indication: BLOOD CALCIUM
     Dosage: UNK
     Dates: start: 2010, end: 2011
  64. NASONEX [Concomitant]
     Active Substance: MOMETASONE FUROATE
  65. VALTREX [Concomitant]
     Active Substance: VALACYCLOVIR HYDROCHLORIDE
     Indication: ANTIBIOTIC THERAPY
     Dosage: UNK
     Dates: start: 2011
  66. BYETTA [Concomitant]
     Active Substance: EXENATIDE
     Indication: DIABETES MELLITUS
     Dosage: UNK
     Dates: start: 2011, end: 2012
  67. NOVOLOG [Concomitant]
     Active Substance: INSULIN ASPART
     Dosage: UNK
     Dates: start: 2013, end: 2018
  68. VIGAMOX [Concomitant]
     Active Substance: MOXIFLOXACIN HYDROCHLORIDE
     Dosage: UNK
     Dates: start: 2008
  69. LINEZOLID. [Concomitant]
     Active Substance: LINEZOLID
     Indication: ANTIBIOTIC THERAPY
     Dosage: UNK
     Dates: start: 2015
  70. MAGNESIUM OXIDE. [Concomitant]
     Active Substance: MAGNESIUM OXIDE
     Dosage: UNK
     Dates: start: 2016
  71. PANTOPRAZOLE [Suspect]
     Active Substance: PANTOPRAZOLE
     Indication: DYSPEPSIA
     Dosage: 40 MG, QD
     Route: 048
     Dates: start: 2016
  72. DEXILANT [Suspect]
     Active Substance: DEXLANSOPRAZOLE
     Indication: DYSPEPSIA
     Dosage: 60 MG, QD
     Route: 048
     Dates: start: 2016, end: 2017
  73. OMEPRAZOLE. [Suspect]
     Active Substance: OMEPRAZOLE
     Indication: DYSPEPSIA
     Dosage: 40 MG, QD
     Route: 048
     Dates: start: 2016
  74. COMBIVENT [Concomitant]
     Active Substance: ALBUTEROL SULFATE\IPRATROPIUM BROMIDE
     Dosage: UNK
     Dates: start: 2008, end: 2012
  75. LEVOTHYROXINE. [Concomitant]
     Active Substance: LEVOTHYROXINE
     Indication: THYROID DISORDER
     Dosage: UNK
     Dates: start: 2008, end: 2018
  76. VITAMIN C [Concomitant]
     Active Substance: ASCORBIC ACID
     Dosage: 500 MG, UNK
     Dates: start: 2008, end: 2010
  77. ASTELIN [Concomitant]
     Active Substance: AZELASTINE HYDROCHLORIDE
     Indication: ANTIALLERGIC THERAPY
     Dosage: UNK
     Dates: start: 2009
  78. LOPROX [Concomitant]
     Active Substance: CICLOPIROX\CICLOPIROX OLAMINE
     Dosage: UNK
     Dates: start: 2009, end: 2010
  79. METHYLPREDNIS [Concomitant]
     Indication: STEROID THERAPY
     Dosage: UNK
     Dates: start: 2009, end: 2014
  80. PRAVASTATIN. [Concomitant]
     Active Substance: PRAVASTATIN
     Indication: BLOOD CHOLESTEROL INCREASED
     Dosage: UNK
     Dates: start: 2009, end: 2018
  81. OXYCODONE [Concomitant]
     Active Substance: OXYCODONE
     Indication: ANALGESIC THERAPY
     Dosage: UNK
     Dates: start: 2010, end: 2015
  82. AMMONIUM LACTATE. [Concomitant]
     Active Substance: AMMONIUM LACTATE
     Dosage: UNK
     Dates: start: 2012
  83. CODAL-DM [Concomitant]
     Dosage: UNK
     Dates: start: 2008
  84. LIDOCAINE AND PRILOCAINE [Concomitant]
     Active Substance: LIDOCAINE\PRILOCAINE
     Dosage: UNK
     Dates: start: 2015
  85. BISACODYL. [Concomitant]
     Active Substance: BISACODYL
     Dosage: UNK
     Dates: start: 2016
  86. RANITIDINE. [Concomitant]
     Active Substance: RANITIDINE
     Dosage: 150 MG, UNK
     Dates: start: 2016
  87. HYDRALAZINE [Concomitant]
     Active Substance: HYDRALAZINE HYDROCHLORIDE
     Dosage: UNK
     Dates: start: 2017, end: 2018
  88. LANSOPRAZOLE. [Suspect]
     Active Substance: LANSOPRAZOLE
     Indication: DYSPEPSIA
     Dosage: 30 MG, QD
     Route: 048
     Dates: start: 2010, end: 2013
  89. NEXIUM [Suspect]
     Active Substance: ESOMEPRAZOLE MAGNESIUM
     Indication: DYSPEPSIA
     Dosage: 40 MG, QD
     Route: 048
     Dates: start: 2008, end: 2016
  90. HUMALOG [Concomitant]
     Active Substance: INSULIN LISPRO
     Indication: BLOOD INSULIN
     Dosage: UNK
     Dates: start: 2008, end: 2012
  91. FUROSEMIDE. [Concomitant]
     Active Substance: FUROSEMIDE
     Indication: DIURETIC THERAPY
     Dosage: UNK
     Dates: start: 2008, end: 2015
  92. METANX [Concomitant]
     Active Substance: LEVOMEFOLATE CALCIUM\METHYLCOBALAMIN\PYRIDOXAL PHOSPHATE ANHYDROUS
     Dosage: UNK
     Dates: start: 2008, end: 2009
  93. AZITHROMYCIN ANHYDROUS. [Concomitant]
     Active Substance: AZITHROMYCIN ANHYDROUS
     Indication: ANTIBIOTIC THERAPY
     Dosage: UNK
     Dates: start: 2009, end: 2017
  94. GLIMEPIRIDE. [Concomitant]
     Active Substance: GLIMEPIRIDE
     Indication: DIABETES MELLITUS
     Dosage: UNK
     Dates: start: 2008, end: 2012
  95. LOSARTAN POTASSIUM. [Concomitant]
     Active Substance: LOSARTAN POTASSIUM
     Indication: HYPERTENSION
     Dosage: UNK
     Dates: start: 2011, end: 2018
  96. THEREMS [Concomitant]
     Dosage: UNK
     Dates: start: 2011, end: 2013
  97. LANTUS [Concomitant]
     Active Substance: INSULIN GLARGINE
     Dosage: UNK
     Dates: start: 2012, end: 2014
  98. FLUTICASONE. [Concomitant]
     Active Substance: FLUTICASONE
     Dosage: UNK
     Dates: start: 2012, end: 2013
  99. FEXOFENADINE [Concomitant]
     Active Substance: FEXOFENADINE\FEXOFENADINE HYDROCHLORIDE
     Indication: ANTIALLERGIC THERAPY
     Dosage: UNK
     Dates: start: 2012, end: 2015
  100. FLUOCINONIDE. [Concomitant]
     Active Substance: FLUOCINONIDE
     Dosage: UNK
     Dates: start: 2013, end: 2015
  101. ISOSORBIDE. [Concomitant]
     Active Substance: ISOSORBIDE
     Dosage: UNK
     Dates: start: 2017, end: 2018
  102. BYDUREON [Concomitant]
     Active Substance: EXENATIDE
     Indication: DIABETES MELLITUS
     Dosage: UNK
     Dates: start: 2015

REACTIONS (3)
  - Chronic kidney disease [Unknown]
  - Acute kidney injury [Unknown]
  - End stage renal disease [Unknown]

NARRATIVE: CASE EVENT DATE: 201210
